FAERS Safety Report 22009095 (Version 3)
Quarter: 2023Q2

REPORT INFORMATION
  Report Type: Report from Study
  Country: BE (occurrence: BE)
  Receive Date: 20230220
  Receipt Date: 20230417
  Transmission Date: 20230721
  Serious: Yes (Hospitalization, Other)
  Sender: FDA-Public Use
  Company Number: BE-BEH-2023154463

PATIENT
  Age: 9 Year
  Sex: Male
  Weight: 34 kg

DRUGS (8)
  1. HAEMATE P [Suspect]
     Active Substance: ANTIHEMOPHILIC FACTOR HUMAN
     Indication: Von Willebrand^s disease
     Dosage: 2400/1000IU, BIW
     Route: 042
     Dates: start: 20180508
  2. HAEMATE P [Suspect]
     Active Substance: ANTIHEMOPHILIC FACTOR HUMAN
     Indication: Prophylaxis
     Dosage: UNK
     Route: 042
  3. HAEMATE P [Suspect]
     Active Substance: ANTIHEMOPHILIC FACTOR HUMAN
     Dosage: 2400/1000IU, TOT
     Route: 042
     Dates: start: 20230113, end: 20230113
  4. HAEMATE P [Suspect]
     Active Substance: ANTIHEMOPHILIC FACTOR HUMAN
     Dosage: 2400/1000IU, TOT
     Route: 042
     Dates: start: 20230117, end: 20230117
  5. HAEMATE P [Suspect]
     Active Substance: ANTIHEMOPHILIC FACTOR HUMAN
     Dosage: 2400/1000IU, TOT
     Route: 042
     Dates: start: 20230203, end: 20230203
  6. HAEMATE P [Suspect]
     Active Substance: ANTIHEMOPHILIC FACTOR HUMAN
     Dosage: 2400/1000IU, TOT
     Route: 042
     Dates: start: 20230207, end: 20230207
  7. HAEMATE P [Suspect]
     Active Substance: ANTIHEMOPHILIC FACTOR HUMAN
     Dosage: 2400/1000IU, TOT
     Route: 042
     Dates: start: 20230310, end: 20230310
  8. HAEMATE P [Suspect]
     Active Substance: ANTIHEMOPHILIC FACTOR HUMAN
     Dosage: 2400/1000IU, BIW (ON TUESDAYS AND FRIDAYS)
     Route: 042

REACTIONS (3)
  - Eye haemorrhage [Recovered/Resolved]
  - Joint swelling [Recovered/Resolved]
  - Wrist fracture [Recovered/Resolved]

NARRATIVE: CASE EVENT DATE: 20230114
